FAERS Safety Report 7571289-5 (Version None)
Quarter: 2011Q2

REPORT INFORMATION
  Report Type: 
  Country: None (occurrence: None)
  Receive Date: 20110624
  Receipt Date: 20110617
  Transmission Date: 20111010
  Serious: Yes (Hospitalization)
  Sender: FDA-Public Use
  Company Number: A0932602A

PATIENT
  Age: 67 Year
  Sex: Female
  Weight: 52.6 kg

DRUGS (1)
  1. FLOLAN [Suspect]
     Dosage: 5NGKM UNKNOWN
     Route: 065
     Dates: start: 20080618

REACTIONS (1)
  - INTESTINAL PERFORATION [None]
